FAERS Safety Report 4482389-0 (Version None)
Quarter: 2004Q4

REPORT INFORMATION
  Report Type: 
  Country: None (occurrence: None)
  Receive Date: 20041022
  Receipt Date: 20040206
  Transmission Date: 20050328
  Serious: No
  Sender: FDA-Public Use
  Company Number: US-BRISTOL-MYERS SQUIBB COMPANY-12499513

PATIENT
  Age: 52 Year
  Sex: Male
  Weight: 113 kg

DRUGS (9)
  1. BUSPAR [Suspect]
  2. AMBIEN [Concomitant]
  3. ASPIRIN [Concomitant]
  4. FUROSEMIDE [Concomitant]
  5. LIPITOR [Concomitant]
  6. VIOXX [Concomitant]
  7. NEXIUM [Concomitant]
  8. PROVIGIL [Concomitant]
  9. LISINOPRIL [Concomitant]

REACTIONS (1)
  - BLOOD PROLACTIN ABNORMAL [None]
